FAERS Safety Report 9848934 (Version 2)
Quarter: 2014Q1

REPORT INFORMATION
  Report Type: Spontaneous
  Country: IT (occurrence: IT)
  Receive Date: 20140128
  Receipt Date: 20140328
  Transmission Date: 20141002
  Serious: Yes (Hospitalization)
  Sender: FDA-Public Use
  Company Number: IT-BAYER-2014-013214

PATIENT
  Age: 55 Year
  Sex: Male
  Weight: 91 kg

DRUGS (1)
  1. NEXAVAR [Suspect]
     Indication: HEPATOCELLULAR CARCINOMA
     Dosage: DAILY DOSE 800 MG
     Route: 048
     Dates: start: 20111215, end: 20131203

REACTIONS (2)
  - Diverticulitis [Recovered/Resolved]
  - Abdominal pain [Recovered/Resolved]
